FAERS Safety Report 14506304 (Version 2)
Quarter: 2018Q1

REPORT INFORMATION
  Report Type: Spontaneous
  Country: DE (occurrence: DE)
  Receive Date: 20180208
  Receipt Date: 20180316
  Transmission Date: 20180509
  Serious: Yes (Death, Life-Threatening, Other)
  Sender: FDA-Public Use
  Company Number: DE-B.I. PHARMACEUTICALS,INC./RIDGEFIELD-2018-BI-007484

PATIENT
  Age: 87 Year
  Sex: Female
  Weight: 75 kg

DRUGS (10)
  1. LANITOP [Concomitant]
     Active Substance: METILDIGOXIN
     Indication: ATRIAL FIBRILLATION
  2. TROMCARDIN [Concomitant]
     Active Substance: MAGNESIUM ASPARTATE\POTASSIUM ASPARTATE
     Indication: PRODUCT USED FOR UNKNOWN INDICATION
     Route: 048
  3. PRADAXA [Suspect]
     Active Substance: DABIGATRAN ETEXILATE MESYLATE
     Indication: ATRIAL FIBRILLATION
  4. BELOC ZOK MITE [Concomitant]
     Active Substance: METOPROLOL SUCCINATE
     Indication: ATRIAL FIBRILLATION
  5. PRADAXA [Suspect]
     Active Substance: DABIGATRAN ETEXILATE MESYLATE
     Indication: ATRIAL FIBRILLATION
     Route: 048
  6. LANITOP [Concomitant]
     Active Substance: METILDIGOXIN
     Indication: CARDIAC FAILURE
  7. BELOC ZOK MITE [Concomitant]
     Active Substance: METOPROLOL SUCCINATE
     Indication: ATRIAL FIBRILLATION
     Dosage: 0.5 DOSAGE FORM
     Route: 048
     Dates: start: 20180127
  8. LANITOP [Concomitant]
     Active Substance: METILDIGOXIN
     Indication: ATRIAL FIBRILLATION
     Route: 048
     Dates: start: 20180127
  9. TOREM [Concomitant]
     Active Substance: TORSEMIDE
     Indication: CARDIAC FAILURE
     Route: 048
     Dates: start: 20180127
  10. VIGANTOLETTEN [Concomitant]
     Active Substance: CHOLECALCIFEROL
     Indication: PRODUCT USED FOR UNKNOWN INDICATION
     Route: 048

REACTIONS (3)
  - Fall [Fatal]
  - Shock haemorrhagic [Fatal]
  - Pelvic fracture [Fatal]

NARRATIVE: CASE EVENT DATE: 20180127
